FAERS Safety Report 5389901-8 (Version None)
Quarter: 2007Q3

REPORT INFORMATION
  Report Type: 
  Country: None (occurrence: None)
  Receive Date: 20070718
  Receipt Date: 20070712
  Transmission Date: 20080115
  Serious: Yes (Other)
  Sender: FDA-Public Use
  Company Number: DEWYE019913JUL07

PATIENT
  Age: 20 Year
  Sex: Female

DRUGS (2)
  1. VENLAFAXINE HCL [Suspect]
     Route: 048
  2. ALPRAZOLAM [Suspect]
     Dosage: UNKNOWN

REACTIONS (2)
  - AGGRESSION [None]
  - ROAD TRAFFIC ACCIDENT [None]
